FAERS Safety Report 8785426 (Version 1)
Quarter: 2012Q4

REPORT INFORMATION
  Report Type: Spontaneous
  Country: US (occurrence: None)
  Receive Date: 20120904
  Receipt Date: 20120904
  Transmission Date: 20130627
  Serious: No
  Sender: FDA-Public Use
  Company Number: AUR-APL-2012-03758

PATIENT
  Age: 64 Year
  Sex: Male

DRUGS (1)
  1. TERBINAFINE [Suspect]
     Indication: ONYCHOMYCOSIS

REACTIONS (1)
  - Chronic hepatitis [None]
